FAERS Safety Report 10268215 (Version 1)
Quarter: 2014Q2

REPORT INFORMATION
  Report Type: Spontaneous
  Country: US (occurrence: None)
  Receive Date: 20140626
  Receipt Date: 20140626
  Transmission Date: 20141212
  Serious: Yes (Hospitalization)
  Sender: FDA-Public Use
  Company Number: None

PATIENT
  Age: 67 Year
  Sex: Male
  Weight: 89.5 kg

DRUGS (1)
  1. CISPLATIN [Suspect]
     Indication: NEOPLASM
     Route: 042
     Dates: start: 20140609, end: 20140609

REACTIONS (1)
  - Febrile neutropenia [None]
